FAERS Safety Report 25722663 (Version 1)
Quarter: 2025Q3

REPORT INFORMATION
  Report Type: Spontaneous
  Country: JP (occurrence: JP)
  Receive Date: 20250825
  Receipt Date: 20250825
  Transmission Date: 20251021
  Serious: Yes (Hospitalization, Other)
  Sender: ADAPTIS PHARMA INDIA
  Company Number: JP-Adaptis Pharma Private Limited-2183126

PATIENT
  Age: 46 Year
  Sex: Male

DRUGS (1)
  1. IBUPROFEN [Suspect]
     Active Substance: IBUPROFEN
     Indication: Upper respiratory tract infection

REACTIONS (1)
  - Tubulointerstitial nephritis [Recovering/Resolving]
